FAERS Safety Report 9519311 (Version 1)
Quarter: 2013Q3

REPORT INFORMATION
  Report Type: Spontaneous
  Country: US (occurrence: None)
  Receive Date: 20130911
  Receipt Date: 20130911
  Transmission Date: 20140515
  Serious: Yes (Hospitalization)
  Sender: FDA-Public Use
  Company Number: None

PATIENT
  Age: 75 Year
  Sex: Male
  Weight: 95.7 kg

DRUGS (1)
  1. ATENOLOL [Suspect]
     Indication: HYPERTENSION
     Route: 048
     Dates: start: 20121107, end: 20130722

REACTIONS (5)
  - Syncope [None]
  - Sinus bradycardia [None]
  - Chest pain [None]
  - Hyperhidrosis [None]
  - Dyspnoea [None]
